FAERS Safety Report 14088871 (Version 1)
Quarter: 2017Q4

REPORT INFORMATION
  Report Type: Spontaneous
  Country: CN (occurrence: CN)
  Receive Date: 20171013
  Receipt Date: 20171013
  Transmission Date: 20180321
  Serious: Yes (Hospitalization, Disabling)
  Sender: FDA-Public Use
  Company Number: CN-PFIZER INC-2017437155

PATIENT
  Age: 64 Year
  Sex: Male
  Weight: 75 kg

DRUGS (1)
  1. LIPITOR [Suspect]
     Active Substance: ATORVASTATIN CALCIUM
     Indication: DYSLIPIDAEMIA
     Dosage: 20 MG, 1X/DAY
     Route: 048
     Dates: start: 20170312, end: 20170801

REACTIONS (7)
  - Hepatic function abnormal [Recovering/Resolving]
  - Hepatitis viral [Recovering/Resolving]
  - Cardiac failure [Recovering/Resolving]
  - Liver injury [Recovering/Resolving]
  - Hepatic congestion [Recovering/Resolving]
  - Haemorrhage [Recovering/Resolving]
  - Ischaemic cardiomyopathy [Recovering/Resolving]

NARRATIVE: CASE EVENT DATE: 20170801
